FAERS Safety Report 7271538-7 (Version None)
Quarter: 2011Q1

REPORT INFORMATION
  Report Type: 
  Country: None (occurrence: None)
  Receive Date: 20110203
  Receipt Date: 20110119
  Transmission Date: 20110831
  Serious: Yes (Other)
  Sender: FDA-Public Use
  Company Number: GB-RANBAXY-2010RR-35462

PATIENT
  Age: 48 Year
  Sex: Female

DRUGS (2)
  1. CLENIL INHALER [Concomitant]
     Indication: ASTHMA
  2. AMOXICILLIN [Suspect]
     Dosage: 250 MG, UNK
     Route: 048
     Dates: start: 20100504, end: 20100506

REACTIONS (4)
  - RASH [None]
  - DYSPEPSIA [None]
  - RASH PRURITIC [None]
  - RASH MACULAR [None]
